FAERS Safety Report 15117516 (Version 3)
Quarter: 2018Q4

REPORT INFORMATION
  Report Type: Spontaneous
  Country: US (occurrence: US)
  Receive Date: 20180706
  Receipt Date: 20181025
  Transmission Date: 20190204
  Serious: Yes (Other)
  Sender: FDA-Public Use
  Company Number: US-BAUSCH-BL-2018-017821

PATIENT
  Age: 89 Year
  Sex: Male
  Weight: 68.1 kg

DRUGS (11)
  1. PYRIDOSTIGMINE BROMIDE. [Suspect]
     Active Substance: PYRIDOSTIGMINE BROMIDE
     Dosage: 1 TABLET 4 TIMES A DAY
     Route: 048
     Dates: start: 201806
  2. TRAVATAN [Concomitant]
     Active Substance: TRAVOPROST
     Indication: GLAUCOMA
  3. METOPROLOL TARTRATE. [Concomitant]
     Active Substance: METOPROLOL TARTRATE
     Indication: PRODUCT USED FOR UNKNOWN INDICATION
  4. TAMSULOSIN [Concomitant]
     Active Substance: TAMSULOSIN
     Indication: PRODUCT USED FOR UNKNOWN INDICATION
  5. LIPITOR [Concomitant]
     Active Substance: ATORVASTATIN CALCIUM
     Indication: PRODUCT USED FOR UNKNOWN INDICATION
  6. FLOMAX [Concomitant]
     Active Substance: TAMSULOSIN HYDROCHLORIDE
     Indication: PRODUCT USED FOR UNKNOWN INDICATION
  7. LISINOPRIL. [Concomitant]
     Active Substance: LISINOPRIL
     Indication: PRODUCT USED FOR UNKNOWN INDICATION
  8. SYSTANE (HYPROMELLOSE 2910 (4000 MPA.S)) [Concomitant]
     Active Substance: HYPROMELLOSE 2910 (4000 MPA.S)
     Indication: PRODUCT USED FOR UNKNOWN INDICATION
  9. PYRIDOSTIGMINE BROMIDE. [Suspect]
     Active Substance: PYRIDOSTIGMINE BROMIDE
     Indication: MYASTHENIA GRAVIS
     Dosage: HALF TABLET BY MOUTH 4 TIMES A DAY AT 8 AM, 12 PM, 4 PM, AND 8 PM
     Route: 048
     Dates: start: 20180601
  10. PYRIDOSTIGMINE BROMIDE. [Suspect]
     Active Substance: PYRIDOSTIGMINE BROMIDE
     Dosage: (HALF A TABLET, 2-3 TIMES A DAY)
     Route: 048
     Dates: start: 201806
  11. PYRIDOSTIGMINE BROMIDE. [Suspect]
     Active Substance: PYRIDOSTIGMINE BROMIDE
     Dosage: ONE FULL TABLET THREE TIMES A DAY (ONE AT 8AM, ONE AT 12PM AFTERNOON AND ONE AT 8PM AT NIGHT)
     Route: 048
     Dates: start: 2018

REACTIONS (9)
  - Myasthenia gravis [Recovering/Resolving]
  - Rhinorrhoea [Recovering/Resolving]
  - Pollakiuria [Recovering/Resolving]
  - Therapy change [Recovered/Resolved]
  - Insurance issue [Unknown]
  - Fatigue [Recovering/Resolving]
  - Constipation [Recovering/Resolving]
  - Back pain [Recovering/Resolving]
  - Prostatomegaly [Unknown]

NARRATIVE: CASE EVENT DATE: 2018
